FAERS Safety Report 18097237 (Version 1)
Quarter: 2020Q3

REPORT INFORMATION
  Report Type: Other
  Country: GB (occurrence: GB)
  Receive Date: 20200731
  Receipt Date: 20200731
  Transmission Date: 20201103
  Serious: Yes (Other)
  Sender: FDA-Public Use
  Company Number: GB-EMCURE PHARMACEUTICALS LTD-2020-EPL-001003

PATIENT
  Age: 81 Year
  Sex: Female
  Weight: 62 kg

DRUGS (15)
  1. METFORMIN HYDROCHLORIDE. [Concomitant]
     Active Substance: METFORMIN HYDROCHLORIDE
     Dosage: 1 DOSAGE FORM, DAILY (WITH LUNCH)
     Dates: start: 20191118
  2. ATORVASTATIN [Concomitant]
     Active Substance: ATORVASTATIN
     Dosage: 1 DOSAGE FORM, DAILY
     Dates: start: 20191118
  3. CARBOCISTEINE [Concomitant]
     Active Substance: CARBOCYSTEINE
     Dosage: 2 DOSAGE FORM, DAILY
     Dates: start: 20191118
  4. ZOLEDRONIC ACID [Suspect]
     Active Substance: ZOLEDRONIC ACID
     Indication: PRODUCT USED FOR UNKNOWN INDICATION
     Dosage: 4MG/5ML
     Dates: start: 20200708
  5. CALCEOS [Concomitant]
     Active Substance: CALCIUM CARBONATE\CHOLECALCIFEROL
     Dosage: 2 DOSAGE FORM, DAILY
     Dates: start: 20191118
  6. BUTEC [Concomitant]
     Active Substance: BUPRENORPHINE
     Dosage: 1 DOSAGE FORM, 1 DOSE PER 1W (APPLY ONE WEEKLY)
     Dates: start: 20200416
  7. OMEPRAZOLE. [Concomitant]
     Active Substance: OMEPRAZOLE
     Dosage: 2 DOSAGE FORM, DAILY (TAKE TWO DAILY)
     Dates: start: 20191118
  8. LATANOPROST. [Concomitant]
     Active Substance: LATANOPROST
     Dosage: 1 GTT DROPS, DAILY
     Dates: start: 20191118
  9. LEVOTHYROXINE. [Concomitant]
     Active Substance: LEVOTHYROXINE
     Dosage: 1 DOSAGE FORM, 1 DOSE PER 2 D, (TAKE ONE ALTERNATE MORNINGS)
     Dates: start: 20191118
  10. REPAGLINIDE. [Concomitant]
     Active Substance: REPAGLINIDE
     Dosage: 3 DOSAGE FORM, DAILY
     Dates: start: 20191118
  11. HYDROCORTISONE. [Concomitant]
     Active Substance: HYDROCORTISONE
     Dosage: 2 DOSAGE FORM, DAILY (APPLY TWICE A DAY)
     Dates: start: 20200514, end: 20200528
  12. ACETYLSALICYLIC ACID [Concomitant]
     Active Substance: ASPIRIN
     Dosage: 1 DOSAGE FORM, DAILY
     Dates: start: 20191118
  13. SODIUM PHOSPHATE, CALCIUM LACTATE, MALIC ACID [Concomitant]
     Dosage: UNK, PRN (SUCK AT NIGHT AS NEEDED)
     Dates: start: 20191118
  14. LACTULOSE. [Concomitant]
     Active Substance: LACTULOSE
     Dosage: 30 MILLILITER, DAILY
     Dates: start: 20200413
  15. PARACETAMOL [Concomitant]
     Active Substance: ACETAMINOPHEN
     Dosage: 8 DOSAGE FORM, DAILY (TWO FOUR TIMES A DAY EVERY 4 TO 6 HOURS AS NEEDED)
     Dates: start: 20191118

REACTIONS (7)
  - Onychoclasis [Unknown]
  - Rash pustular [Unknown]
  - Alopecia [Unknown]
  - Oral pain [Unknown]
  - Taste disorder [Not Recovered/Not Resolved]
  - Taste disorder [Unknown]
  - Malaise [Unknown]

NARRATIVE: CASE EVENT DATE: 20200708
